FAERS Safety Report 7676891-8 (Version None)
Quarter: 2011Q3

REPORT INFORMATION
  Report Type: 
  Country: None (occurrence: None)
  Receive Date: 20110811
  Receipt Date: 20110803
  Transmission Date: 20111222
  Serious: Yes (Other)
  Sender: FDA-Public Use
  Company Number: PHHY2011US20069

PATIENT
  Sex: Female
  Weight: 70.76 kg

DRUGS (18)
  1. LOVAZA [Concomitant]
  2. PRILOSEC [Concomitant]
     Dosage: UNK UKN, UNK
  3. VITAMIN TAB [Concomitant]
  4. NAPROXEN (ALEVE) [Concomitant]
     Dosage: UNK UKN, UNK
  5. FOSAMAX [Concomitant]
     Dosage: UNK UKN, UNK
  6. NAPROSYN [Concomitant]
     Dosage: UNK UKN, UNK
  7. DILAUDID [Concomitant]
     Dosage: UNK UKN, UNK
  8. CALCIUM CARBONATE [Concomitant]
  9. IBUPROFEN [Concomitant]
     Dosage: UNK UKN, UNK
  10. ASPIRIN [Concomitant]
     Dosage: UNK UKN, UNK
  11. EXJADE [Suspect]
     Indication: HAEMOCHROMATOSIS
     Dosage: 1500 MG, DAILY
     Route: 048
     Dates: start: 20110201
  12. MULTI-VITAMINS [Concomitant]
  13. GINKGO BILOBA [Concomitant]
     Dosage: UNK UKN, UNK
  14. VITAMIN D [Concomitant]
     Dosage: UNK UKN, UNK
  15. SYNTHROID [Concomitant]
  16. VALTURNA [Suspect]
     Indication: BLOOD PRESSURE INCREASED
  17. LEVOTHYROXINE SODIUM [Concomitant]
     Dosage: UNK UKN, UNK
  18. FOLIC ACID [Concomitant]
     Dosage: UNK UKN, UNK

REACTIONS (10)
  - PYREXIA [None]
  - PAIN [None]
  - GINGIVAL PAIN [None]
  - DIZZINESS [None]
  - PRURITUS [None]
  - RASH PRURITIC [None]
  - GINGIVAL BLEEDING [None]
  - CHILLS [None]
  - DECREASED APPETITE [None]
  - OROPHARYNGEAL PAIN [None]
